FAERS Safety Report 25853570 (Version 1)
Quarter: 2025Q3

REPORT INFORMATION
  Report Type: Spontaneous
  Country: US (occurrence: US)
  Receive Date: 20250926
  Receipt Date: 20250926
  Transmission Date: 20251020
  Serious: Yes (Other)
  Sender: TAIHO ONCOLOGY INC
  Company Number: US-TAIHOP-2025-010365

PATIENT
  Sex: Female
  Weight: 44.18 kg

DRUGS (1)
  1. INQOVI [Suspect]
     Active Substance: CEDAZURIDINE\DECITABINE
     Indication: Myelodysplastic syndrome
     Dosage: CYCLE: UNKNOWN?135 MG (DECITABINE 35 MG AND CEDAZURIDINE 100 MG) FOR 5 DAYS
     Route: 048

REACTIONS (3)
  - Cytopenia [Unknown]
  - Asthenia [Unknown]
  - Fatigue [Unknown]
